FAERS Safety Report 17783147 (Version 3)
Quarter: 2021Q3

REPORT INFORMATION
  Report Type: Spontaneous
  Country: US (occurrence: US)
  Receive Date: 20200514
  Receipt Date: 20210924
  Transmission Date: 20211014
  Serious: No
  Sender: FDA-Public Use
  Company Number: US-PFIZER INC-2020190898

PATIENT
  Age: 78 Year

DRUGS (1)
  1. TOVIAZ [Suspect]
     Active Substance: FESOTERODINE FUMARATE
     Dosage: UNK (QUANTITY FOR 90 DAYS: 120)

REACTIONS (2)
  - Feeling abnormal [Unknown]
  - Off label use [Unknown]
